FAERS Safety Report 4762180-8 (Version None)
Quarter: 2005Q3

REPORT INFORMATION
  Report Type: 
  Country: None (occurrence: None)
  Receive Date: 20050906
  Receipt Date: 20050906
  Transmission Date: 20060218
  Serious: Yes (Hospitalization)
  Sender: FDA-Public Use
  Company Number: None

PATIENT
  Sex: Female
  Weight: 61.6892 kg

DRUGS (1)
  1. GEMCITABINE 350 MG/M2 [Suspect]
     Indication: CERVIX CARCINOMA
     Dosage: 546 MG Q WK, IV
     Route: 042
     Dates: start: 20050824

REACTIONS (1)
  - HAEMOGLOBIN DECREASED [None]
